FAERS Safety Report 20598908 (Version 3)
Quarter: 2022Q2

REPORT INFORMATION
  Report Type: Report from Study
  Country: NL (occurrence: None)
  Receive Date: 20220315
  Receipt Date: 20220408
  Transmission Date: 20220721
  Serious: Yes (Hospitalization)
  Sender: FDA-Public Use
  Company Number: NL-ROCHE-3042489

PATIENT
  Age: 42 Year
  Sex: Male

DRUGS (4)
  1. ATEZOLIZUMAB [Suspect]
     Active Substance: ATEZOLIZUMAB
     Indication: Rectal cancer
     Dosage: MOST RECENT DOSE: 02/DEC/2021
     Route: 041
     Dates: start: 20211105
  2. BEVACIZUMAB [Suspect]
     Active Substance: BEVACIZUMAB
     Indication: Rectal cancer
     Dosage: MOST RECENT DOSE: 05/NOV/2021, 18/NOV/2021
     Route: 042
     Dates: start: 20211019
  3. ACETAMINOPHEN [Concomitant]
     Active Substance: ACETAMINOPHEN
     Dates: start: 20220124
  4. MORPHINE [Concomitant]
     Active Substance: MORPHINE
     Dates: start: 20220127

REACTIONS (1)
  - Wound infection [Recovered/Resolved]

NARRATIVE: CASE EVENT DATE: 20220216
